FAERS Safety Report 13003075 (Version 1)
Quarter: 2016Q4

REPORT INFORMATION
  Report Type: Other
  Country: FR (occurrence: FR)
  Receive Date: 20161206
  Receipt Date: 20161206
  Transmission Date: 20170207
  Serious: Yes (Death, Other)
  Sender: FDA-Public Use
  Company Number: FR-EMD SERONO-8122579

PATIENT
  Age: 13 Year
  Sex: Female

DRUGS (1)
  1. RECOMBINANT HUMAN GROWTH HORMONE (RHGH) [Suspect]
     Active Substance: SOMATROPIN
     Indication: GROWTH RETARDATION
     Dosage: 0.35 MG PER KG PER WEEK
     Route: 058

REACTIONS (2)
  - Sarcoma metastatic [Fatal]
  - Injection site mass [Unknown]
